FAERS Safety Report 7737769-4 (Version None)
Quarter: 2011Q3

REPORT INFORMATION
  Report Type: 
  Country: None (occurrence: None)
  Receive Date: 20110906
  Receipt Date: 20110824
  Transmission Date: 20111222
  Serious: Yes (Hospitalization)
  Sender: FDA-Public Use
  Company Number: UTC-007642

PATIENT
  Age: 46 Year
  Sex: Female
  Weight: 142.2 kg

DRUGS (4)
  1. TRACLEER [Concomitant]
  2. DIURETICS (DIURETICS) [Concomitant]
  3. COUMADIN [Concomitant]
  4. REMODULIN [Suspect]
     Indication: COR PULMONALE CHRONIC
     Dosage: 43.2 UG/KG (0.03 UG/KG, 1 IN 1 MIN)INTRAVENOUS
     Route: 042
     Dates: start: 20110406

REACTIONS (4)
  - DIARRHOEA [None]
  - PAIN IN JAW [None]
  - INJECTION SITE CELLULITIS [None]
  - HEADACHE [None]
